FAERS Safety Report 11020080 (Version 6)
Quarter: 2018Q4

REPORT INFORMATION
  Report Type: Report from Study
  Country: DE (occurrence: DE)
  Receive Date: 20150412
  Receipt Date: 20181217
  Transmission Date: 20190204
  Serious: Yes (Hospitalization)
  Sender: FDA-Public Use
  Company Number: PHHY2015DE030343

PATIENT
  Age: 39 Year
  Sex: Female
  Weight: 56 kg

DRUGS (2)
  1. RAXIM O [Concomitant]
     Indication: PRODUCT USED FOR UNKNOWN INDICATION
     Dosage: 1 DF, QD
     Route: 048
     Dates: start: 20150301
  2. GILENYA [Suspect]
     Active Substance: FINGOLIMOD HYDROCHLORIDE
     Indication: RELAPSING-REMITTING MULTIPLE SCLEROSIS
     Dosage: 0.5 MG, QD
     Route: 048
     Dates: start: 201501, end: 20150207

REACTIONS (9)
  - Headache [Unknown]
  - Cognitive disorder [Unknown]
  - Immune reconstitution inflammatory syndrome [Unknown]
  - Personality change [Unknown]
  - Seizure [Not Recovered/Not Resolved]
  - White blood cell count decreased [Unknown]
  - Progressive multifocal leukoencephalopathy [Recovered/Resolved with Sequelae]
  - Fatigue [Unknown]
  - Hemiparesis [Unknown]

NARRATIVE: CASE EVENT DATE: 20150307
